FAERS Safety Report 6531934-X (Version None)
Quarter: 2010Q1

REPORT INFORMATION
  Report Type: 
  Country: None (occurrence: None)
  Receive Date: 20100107
  Receipt Date: 20100107
  Transmission Date: 20100710
  Serious: Yes (Other)
  Sender: FDA-Public Use
  Company Number: None

PATIENT
  Age: 36 Year
  Sex: Female
  Weight: 64.4108 kg

DRUGS (1)
  1. CYMBALTA [Suspect]
     Indication: DEPRESSION
     Dosage: 30 MG DAILY PO
     Route: 048
     Dates: start: 20080101, end: 20091230

REACTIONS (7)
  - ANORGASMIA [None]
  - BACK PAIN [None]
  - INSOMNIA [None]
  - LOSS OF LIBIDO [None]
  - NIGHT SWEATS [None]
  - UNEVALUABLE EVENT [None]
  - WITHDRAWAL SYNDROME [None]
